FAERS Safety Report 4567143-3 (Version None)
Quarter: 2005Q1

REPORT INFORMATION
  Report Type: 
  Country: None (occurrence: None)
  Receive Date: 20050127
  Receipt Date: 20050110
  Transmission Date: 20050727
  Serious: Yes (Hospitalization, Other)
  Sender: FDA-Public Use
  Company Number: M04-341-099

PATIENT
  Age: 53 Year
  Sex: Male
  Weight: 81 kg

DRUGS (12)
  1. VELCADE [Suspect]
     Indication: MULTIPLE MYELOMA
     Dosage: 2.60 MG INTRAVENOUS
     Route: 042
     Dates: start: 20031125, end: 20031204
  2. AMIODARONE [Concomitant]
  3. SOTALOL HCL [Concomitant]
  4. WARFARIN SODIUM [Concomitant]
  5. SPIRONOLACTONE [Concomitant]
  6. FUROSEMIDE [Concomitant]
  7. PREVACID [Concomitant]
  8. OXEPAM [Concomitant]
  9. PROPAFENONE HYDROCHLORIDE [Concomitant]
  10. MELPHALAN [Concomitant]
  11. KYTRIL [Concomitant]
  12. THALIDOMIDE [Concomitant]

REACTIONS (40)
  - ANXIETY [None]
  - ARRHYTHMIA [None]
  - ATELECTASIS [None]
  - ATRIOVENTRICULAR BLOCK FIRST DEGREE [None]
  - AUTONOMIC NEUROPATHY [None]
  - BLOOD CHLORIDE DECREASED [None]
  - BLOOD POTASSIUM DECREASED [None]
  - BODY TEMPERATURE DECREASED [None]
  - CONSTIPATION [None]
  - DECREASED APPETITE [None]
  - DIZZINESS [None]
  - DYSAESTHESIA [None]
  - DYSPNOEA EXERTIONAL [None]
  - EARLY SATIETY [None]
  - ELECTROCARDIOGRAM POOR R-WAVE PROGRESSION [None]
  - ELECTROCARDIOGRAM QT CORRECTED INTERVAL PROLONGED [None]
  - ELECTROCARDIOGRAM ST-T CHANGE [None]
  - EMPHYSEMA [None]
  - FATIGUE [None]
  - FLUID OVERLOAD [None]
  - FLUID RETENTION [None]
  - GASTROINTESTINAL DISORDER [None]
  - HYPOAESTHESIA [None]
  - HYPOTENSION [None]
  - IMPAIRED GASTRIC EMPTYING [None]
  - INSPIRATORY CAPACITY DECREASED [None]
  - NAUSEA [None]
  - NEUROPATHIC PAIN [None]
  - NEUROPATHY PERIPHERAL [None]
  - OEDEMA [None]
  - ORTHOSTATIC HYPOTENSION [None]
  - PAIN [None]
  - PAIN IN EXTREMITY [None]
  - PALPITATIONS [None]
  - PARAESTHESIA [None]
  - PITTING OEDEMA [None]
  - PLEURAL EFFUSION [None]
  - RESTRICTIVE CARDIOMYOPATHY [None]
  - RIGHT VENTRICULAR FAILURE [None]
  - VENOUS PRESSURE JUGULAR INCREASED [None]
